FAERS Safety Report 9216409 (Version 1)
Quarter: 2013Q2

REPORT INFORMATION
  Report Type: Spontaneous
  Country: US (occurrence: None)
  Receive Date: 20130402
  Receipt Date: 20130402
  Transmission Date: 20140414
  Serious: Yes (Other)
  Sender: FDA-Public Use
  Company Number: 2013P1003529

PATIENT
  Age: 36 Year
  Sex: Female
  Weight: 55.79 kg

DRUGS (1)
  1. MYORISAN [Suspect]
     Indication: ACNE
     Route: 048
     Dates: start: 201301, end: 20130311

REACTIONS (2)
  - Aggression [None]
  - Visual impairment [None]
